FAERS Safety Report 10045216 (Version 1)
Quarter: 2014Q1

REPORT INFORMATION
  Report Type: Report from Study
  Country: US (occurrence: US)
  Receive Date: 20140328
  Receipt Date: 20140328
  Transmission Date: 20141002
  Serious: Yes (Other)
  Sender: FDA-Public Use
  Company Number: US-JNJFOC-20140314252

PATIENT
  Sex: Female

DRUGS (1)
  1. TOPAMAX [Suspect]
     Indication: PRODUCT USED FOR UNKNOWN INDICATION
     Route: 048

REACTIONS (15)
  - Convulsion [Unknown]
  - Diplopia [Unknown]
  - Depression [Unknown]
  - Hypothyroidism [Unknown]
  - Pain [Unknown]
  - Headache [Unknown]
  - Arthralgia [Unknown]
  - Amnesia [Unknown]
  - Cognitive disorder [Unknown]
  - Vision blurred [Unknown]
  - Fall [Unknown]
  - Contusion [Unknown]
  - Carpal tunnel syndrome [Unknown]
  - Vitamin B12 deficiency [Unknown]
  - Back pain [Unknown]
